FAERS Safety Report 7832061-1 (Version None)
Quarter: 2011Q4

REPORT INFORMATION
  Report Type: 
  Country: None (occurrence: None)
  Receive Date: 20111022
  Receipt Date: 20111014
  Transmission Date: 20120403
  Serious: Yes (Hospitalization, Other)
  Sender: FDA-Public Use
  Company Number: US-AMGEN-USASP2011043623

PATIENT
  Age: 58 Year
  Sex: Female
  Weight: 110 kg

DRUGS (13)
  1. CLARITIN                           /00917501/ [Concomitant]
     Dosage: UNK
     Dates: start: 20090504
  2. METHOTREXATE [Concomitant]
     Dosage: UNK
     Dates: start: 20090504
  3. ENBREL [Suspect]
     Indication: RHEUMATOID ARTHRITIS
     Dosage: 50 MG, QWK
     Dates: start: 20071217, end: 20110914
  4. ZANTAC [Concomitant]
     Dosage: UNK
     Dates: start: 20090504
  5. LISINOPRIL [Concomitant]
     Dosage: UNK
     Dates: start: 20090504
  6. ENBREL [Suspect]
     Dosage: 50 MG, QWK
     Dates: start: 19990101
  7. PREDNISONE TAB [Concomitant]
     Dosage: UNK
     Dates: start: 20090504
  8. PROAIR HFA [Concomitant]
     Dosage: UNK
     Dates: start: 20090504
  9. CARDIZEM [Concomitant]
     Dosage: UNK
     Dates: start: 20090504
  10. NEXIUM [Concomitant]
     Dosage: UNK
     Dates: start: 20090504
  11. NITROSTAT [Concomitant]
     Dosage: UNK
     Dates: start: 20090504
  12. LUNESTA [Concomitant]
     Dosage: UNK
     Dates: start: 20090504
  13. DARVOCET [Concomitant]
     Dosage: UNK
     Dates: start: 20090504

REACTIONS (5)
  - RHEUMATOID ARTHRITIS [None]
  - ASTHMA [None]
  - THERAPEUTIC RESPONSE DECREASED [None]
  - DYSPNOEA [None]
  - GASTROOESOPHAGEAL REFLUX DISEASE [None]
